FAERS Safety Report 7956478-X (Version None)
Quarter: 2011Q4

REPORT INFORMATION
  Report Type: 
  Country: None (occurrence: None)
  Receive Date: 20111201
  Receipt Date: 20111116
  Transmission Date: 20120403
  Serious: Yes (Hospitalization)
  Sender: FDA-Public Use
  Company Number: 2011AP002734

PATIENT
  Age: 36 Year
  Sex: Male

DRUGS (5)
  1. DICLOFENAC SODIUM [Concomitant]
  2. QUETIAPINE FUMARATE [Concomitant]
  3. FLUTICASONE PROPIONATE [Concomitant]
  4. ACETAMINOPHEN [Concomitant]
  5. ALBUTEROL SULFATE [Suspect]
     Indication: ASTHMA
     Dosage: INH;TIW ; 2.5 MG;INH ; 5 MG;INH ; 22.5 MG;INH ; 2.5 MG;INH ; 5 MG;INH ; INH_VAP;INH;QID
     Route: 055

REACTIONS (8)
  - ASTHMA [None]
  - HYPOKALAEMIA [None]
  - HEART RATE INCREASED [None]
  - RESPIRATORY ALKALOSIS [None]
  - CHILLS [None]
  - RESPIRATORY RATE INCREASED [None]
  - LACTIC ACIDOSIS [None]
  - PYREXIA [None]
